FAERS Safety Report 12690419 (Version 1)
Quarter: 2016Q3

REPORT INFORMATION
  Report Type: Spontaneous
  Country: US (occurrence: US)
  Receive Date: 20160826
  Receipt Date: 20160826
  Transmission Date: 20161109
  Serious: No
  Sender: FDA-Public Use
  Company Number: US-FRI-1000083144

PATIENT
  Age: 70 Year
  Sex: Female

DRUGS (2)
  1. NERVE PILL [Concomitant]
     Indication: ANXIETY
  2. LEXAPRO [Suspect]
     Active Substance: ESCITALOPRAM OXALATE
     Indication: ANXIETY

REACTIONS (1)
  - Crying [Not Recovered/Not Resolved]
